FAERS Safety Report 6652428-7 (Version None)
Quarter: 2010Q1

REPORT INFORMATION
  Report Type: 
  Country: None (occurrence: None)
  Receive Date: 20100323
  Receipt Date: 20100311
  Transmission Date: 20100710
  Serious: Yes (Hospitalization)
  Sender: FDA-Public Use
  Company Number: 232548J10USA

PATIENT
  Age: 34 Year
  Sex: Male

DRUGS (1)
  1. REBIF [Suspect]
     Indication: MULTIPLE SCLEROSIS
     Dosage: 44 MCG, 3 IN 1 WEEKS, SUBCUTANEOUS
     Route: 058
     Dates: start: 20100111

REACTIONS (6)
  - INCISION SITE COMPLICATION [None]
  - INCISION SITE ERYTHEMA [None]
  - INCISION SITE PAIN [None]
  - PYREXIA [None]
  - SKIN WARM [None]
  - VOMITING [None]
